FAERS Safety Report 15264020 (Version 1)
Quarter: 2018Q3

REPORT INFORMATION
  Report Type: Spontaneous
  Country: US (occurrence: US)
  Receive Date: 20180720
  Receipt Date: 20180720
  Transmission Date: 20181010
  Serious: No
  Sender: FDA-Public Use
  Company Number: None

PATIENT
  Age: 43 Year
  Sex: Female
  Weight: 90 kg

DRUGS (4)
  1. LATUDA [Suspect]
     Active Substance: LURASIDONE HYDROCHLORIDE
     Indication: BIPOLAR DISORDER
     Dosage: ?          QUANTITY:1 TABLET(S);?
     Route: 048
     Dates: start: 20180711
  2. NALTREXONE [Concomitant]
     Active Substance: NALTREXONE
  3. LAMICTAL [Concomitant]
     Active Substance: LAMOTRIGINE
  4. WELLBUTRIN XL, [Concomitant]

REACTIONS (4)
  - Pruritus [None]
  - Constipation [None]
  - Contusion [None]
  - Scratch [None]

NARRATIVE: CASE EVENT DATE: 20180720
